FAERS Safety Report 8282444-3 (Version None)
Quarter: 2012Q2

REPORT INFORMATION
  Report Type: 
  Country: None (occurrence: None)
  Receive Date: 20120413
  Receipt Date: 20120405
  Transmission Date: 20120825
  Serious: Yes (Hospitalization, Other)
  Sender: FDA-Public Use
  Company Number: US-JNJFOC-20120402789

PATIENT
  Sex: Male
  Weight: 172.37 kg

DRUGS (10)
  1. TOPAMAX [Concomitant]
     Indication: WEIGHT DECREASED
     Route: 048
     Dates: start: 20120301
  2. CELEXA [Concomitant]
     Indication: DEPRESSION
     Route: 048
  3. KLONOPIN [Concomitant]
     Indication: DEPRESSION
     Route: 048
     Dates: start: 20120301
  4. SYNTHROID [Concomitant]
     Indication: HYPOTHYROIDISM
     Route: 048
     Dates: start: 20120301
  5. DURAGESIC-100 [Suspect]
     Indication: INTERVERTEBRAL DISC DEGENERATION
     Route: 062
  6. TOPAMAX [Concomitant]
     Indication: DEPRESSION
     Route: 048
     Dates: start: 20120301
  7. SEROQUEL [Concomitant]
     Indication: BIPOLAR DISORDER
     Route: 048
  8. DURAGESIC-100 [Suspect]
     Indication: SPINAL FRACTURE
     Route: 062
  9. DEPAKOTE [Concomitant]
     Indication: DRUG THERAPY
     Route: 048
     Dates: start: 20120301
  10. DEPAKOTE [Concomitant]
     Indication: DEPRESSION
     Route: 048
     Dates: start: 20120301

REACTIONS (7)
  - SUICIDAL IDEATION [None]
  - HYPOTHYROIDISM [None]
  - TREATMENT NONCOMPLIANCE [None]
  - DEPRESSION [None]
  - ANXIETY [None]
  - MOOD SWINGS [None]
  - APPLICATION SITE PAIN [None]
